FAERS Safety Report 12638824 (Version 1)
Quarter: 2016Q3

REPORT INFORMATION
  Report Type: Report from Study
  Country: US (occurrence: US)
  Receive Date: 20160809
  Receipt Date: 20160809
  Transmission Date: 20161109
  Serious: Yes (Congenital Anomaly)
  Sender: FDA-Public Use
  Company Number: US-ABBVIE-10P-163-0666938-00

PATIENT
  Sex: Female

DRUGS (1)
  1. HUMIRA [Suspect]
     Active Substance: ADALIMUMAB
     Indication: MATERNAL EXPOSURE TIMING UNSPECIFIED
     Route: 064

REACTIONS (8)
  - Foetal exposure during pregnancy [Unknown]
  - Pulmonary artery stenosis [Unknown]
  - Patent ductus arteriosus [Unknown]
  - Congenital pulmonary valve atresia [Unknown]
  - Ventricular hypoplasia [Unknown]
  - Atrial septal defect [Unknown]
  - Congenital tricuspid valve atresia [Unknown]
  - Trisomy 21 [Unknown]

NARRATIVE: CASE EVENT DATE: 20100205
